FAERS Safety Report 5141647-7 (Version None)
Quarter: 2006Q4

REPORT INFORMATION
  Report Type: 
  Country: None (occurrence: None)
  Receive Date: 20061026
  Receipt Date: 20061023
  Transmission Date: 20070319
  Serious: Yes (Other)
  Sender: FDA-Public Use
  Company Number: 148548USA

PATIENT
  Age: 39 Year
  Sex: Female

DRUGS (8)
  1. COPAXONE [Suspect]
     Indication: MULTIPLE SCLEROSIS
     Dosage: 20 MG (20 MG,1 IN 1 D), SUBCUTANEOUS
     Route: 058
     Dates: start: 20050311, end: 20060901
  2. LISINOPRIL [Concomitant]
  3. ATORVASTATIN CALCIUM [Concomitant]
  4. SERTRALINE [Concomitant]
  5. ASCORBIC ACID [Concomitant]
  6. MULTI-VITAMIN [Concomitant]
  7. ASPIRIN [Concomitant]
  8. FENOFIBRATE [Concomitant]

REACTIONS (7)
  - ABDOMINAL PAIN UPPER [None]
  - FOCAL GLOMERULOSCLEROSIS [None]
  - LABORATORY TEST ABNORMAL [None]
  - MALAISE [None]
  - OEDEMA [None]
  - URINE OUTPUT DECREASED [None]
  - WEIGHT DECREASED [None]
